FAERS Safety Report 9215434 (Version 8)
Quarter: 2014Q2

REPORT INFORMATION
  Report Type: Spontaneous
  Country: US (occurrence: US)
  Receive Date: 20130405
  Receipt Date: 20140502
  Transmission Date: 20141212
  Serious: Yes (Hospitalization, Disabling)
  Sender: FDA-Public Use
  Company Number: US-LUNDBECK-DKLU1089858

PATIENT
  Sex: Male
  Weight: 34 kg

DRUGS (6)
  1. ONFI [Suspect]
     Indication: PARTIAL SEIZURES
     Route: 048
     Dates: start: 20130225
  2. ONFI [Suspect]
     Indication: CONVULSION
     Route: 048
     Dates: start: 20130304
  3. ONFI [Suspect]
     Route: 048
     Dates: start: 20130311, end: 20130316
  4. ONFI [Suspect]
     Route: 048
     Dates: start: 20130311, end: 20130316
  5. ONFI [Suspect]
     Dates: start: 20130225
  6. ZONISAMIDE [Concomitant]
     Indication: CONVULSION
     Dates: start: 20121114

REACTIONS (10)
  - Atelectasis [Recovered/Resolved]
  - Cellulitis [Recovered/Resolved]
  - Physical disability [Not Recovered/Not Resolved]
  - Respiratory distress [Recovered/Resolved]
  - Toxic epidermal necrolysis [Recovered/Resolved with Sequelae]
  - Stevens-Johnson syndrome [Recovered/Resolved with Sequelae]
  - Convulsion [Recovered/Resolved]
  - Emotional distress [Not Recovered/Not Resolved]
  - Phlebitis [Recovering/Resolving]
  - Somnolence [Unknown]
